FAERS Safety Report 4650888-4 (Version None)
Quarter: 2005Q2

REPORT INFORMATION
  Report Type: 
  Country: None (occurrence: None)
  Receive Date: 20050429
  Receipt Date: 20050418
  Transmission Date: 20051028
  Serious: Yes (Hospitalization)
  Sender: FDA-Public Use
  Company Number: GBWYE595218APR05

PATIENT
  Age: 72 Year
  Sex: Female

DRUGS (10)
  1. ADVIL [Suspect]
     Indication: ARTHRITIS
     Dosage: 400 MG 3X PER 1 DAY ORAL
     Route: 048
     Dates: start: 20040501, end: 20050307
  2. ASPIRIN [Suspect]
     Dosage: 75 MG 1X PER 1 DAY ORAL
     Route: 048
     Dates: start: 19981001, end: 20050307
  3. ATENOLOL [Concomitant]
  4. ATORVASTATIN CALCIUM [Concomitant]
  5. RANITIDINE [Concomitant]
  6. BENDROFLUAZIDE (BENDROFLUMETHIAZIDE) [Concomitant]
  7. NITROGLYCERIN [Concomitant]
  8. EUMOVATE (CLOBETASONE BUTYRATE) [Concomitant]
  9. LACTULOSE [Concomitant]
  10. ACETAMINOPHEN [Concomitant]

REACTIONS (2)
  - GASTRIC ULCER PERFORATION [None]
  - RENAL COLIC [None]
